FAERS Safety Report 7306215-7 (Version None)
Quarter: 2011Q1

REPORT INFORMATION
  Report Type: 
  Country: None (occurrence: None)
  Receive Date: 20110222
  Receipt Date: 20110209
  Transmission Date: 20110831
  Serious: Yes (Hospitalization, Other)
  Sender: FDA-Public Use
  Company Number: PHHY2011GB10362

PATIENT
  Age: 87 Year
  Sex: Male

DRUGS (4)
  1. DICLOFENAC [Suspect]
     Dosage: 25 MG, TID
     Route: 048
     Dates: start: 20090529, end: 20100113
  2. NAPROXEN [Suspect]
     Indication: OSTEOARTHRITIS
     Dosage: UNK
     Dates: start: 20080911, end: 20090529
  3. IBUPROFEN [Suspect]
     Dosage: UNK
     Dates: start: 20081014
  4. DICLOFENAC [Suspect]
     Indication: OSTEOARTHRITIS
     Dosage: 25 MG, TID
     Route: 048
     Dates: start: 20080708

REACTIONS (5)
  - DYSPNOEA [None]
  - LUNG NEOPLASM [None]
  - PULMONARY EMBOLISM [None]
  - METASTASES TO LUNG [None]
  - CIRCULATORY COLLAPSE [None]
